FAERS Safety Report 19169556 (Version 3)
Quarter: 2021Q3

REPORT INFORMATION
  Report Type: Spontaneous
  Country: AT (occurrence: AT)
  Receive Date: 20210422
  Receipt Date: 20210726
  Transmission Date: 20211014
  Serious: No
  Sender: FDA-Public Use
  Company Number: AT-PFIZER INC-2021390638

PATIENT
  Age: 42 Year
  Sex: Female

DRUGS (1)
  1. NIVESTIM [Suspect]
     Active Substance: FILGRASTIM

REACTIONS (2)
  - Needle issue [Unknown]
  - Syringe issue [Unknown]
